FAERS Safety Report 5163040-3 (Version None)
Quarter: 2006Q4

REPORT INFORMATION
  Report Type: 
  Country: None (occurrence: None)
  Receive Date: 20061201
  Receipt Date: 20001214
  Transmission Date: 20070319
  Serious: Yes (Hospitalization)
  Sender: FDA-Public Use
  Company Number: FR-BOEHRINGER INGELHEIM PHARMACEUTICALS, INC.-2000-FF-S0742

PATIENT
  Sex: Female
  Weight: 2 kg

DRUGS (10)
  1. VIRAMUNE [Suspect]
     Indication: VERTICAL INFECTION TRANSMISSION
     Route: 048
  2. ZERIT [Suspect]
     Indication: VERTICAL INFECTION TRANSMISSION
     Route: 048
  3. ZERIT [Suspect]
     Indication: HIV INFECTION
     Route: 064
  4. VIDEX [Suspect]
     Indication: HIV INFECTION
     Route: 064
  5. SUSTIVA [Suspect]
     Indication: HIV INFECTION
     Route: 064
  6. VIRACEPT [Suspect]
     Indication: HIV INFECTION
     Route: 064
  7. COMBIVIR [Suspect]
     Indication: HIV INFECTION
     Route: 064
  8. RETROVIR [Suspect]
     Indication: HUMAN IMMUNODEFICIENCY VIRUS TRANSMISSION
     Route: 064
     Dates: start: 20000908, end: 20000908
  9. SALBUTAMOL [Concomitant]
     Route: 015
  10. SPASFON [Concomitant]
     Route: 015

REACTIONS (12)
  - BODY HEIGHT BELOW NORMAL [None]
  - BRONCHITIS [None]
  - DEVELOPMENTAL DELAY [None]
  - DRUG EXPOSURE DURING PREGNANCY [None]
  - ECZEMA [None]
  - FOETAL GROWTH RETARDATION [None]
  - GASTROINTESTINAL DISORDER [None]
  - HAEMANGIOMA [None]
  - HYPERTRIGLYCERIDAEMIA [None]
  - LYMPHOPENIA [None]
  - NEONATAL DISORDER [None]
  - NEUTROPENIA [None]
